FAERS Safety Report 5519545-6 (Version None)
Quarter: 2007Q4

REPORT INFORMATION
  Report Type: 
  Country: None (occurrence: None)
  Receive Date: 20071116
  Receipt Date: 20071112
  Transmission Date: 20080405
  Serious: Yes (Other)
  Sender: FDA-Public Use
  Company Number: B0494802A

PATIENT
  Age: 4 Year
  Sex: Male

DRUGS (2)
  1. FLIXOTIDE [Suspect]
     Indication: ASTHMA
     Dosage: 2PUFF TWICE PER DAY
     Route: 055
  2. SALBUTAMOL SULPHATE [Suspect]
     Indication: ASTHMA
     Dosage: 2PUFF FOUR TIMES PER DAY

REACTIONS (1)
  - ASTHMA [None]
